FAERS Safety Report 5051169-X (Version None)
Quarter: 2006Q3

REPORT INFORMATION
  Report Type: 
  Country: None (occurrence: None)
  Receive Date: 20060714
  Receipt Date: 20060702
  Transmission Date: 20061208
  Serious: Yes (Hospitalization)
  Sender: FDA-Public Use
  Company Number: US-AMGEN-US185015

PATIENT
  Sex: Female

DRUGS (2)
  1. ENBREL [Suspect]
     Indication: RHEUMATOID ARTHRITIS
     Route: 058
     Dates: start: 20040428
  2. METHOTREXATE [Concomitant]

REACTIONS (4)
  - BALANCE DISORDER [None]
  - FORMICATION [None]
  - HEADACHE [None]
  - NECK PAIN [None]
